FAERS Safety Report 11907236 (Version 2)
Quarter: 2016Q1

REPORT INFORMATION
  Report Type: Spontaneous
  Country: GB (occurrence: GB)
  Receive Date: 20160111
  Receipt Date: 20160112
  Transmission Date: 20160526
  Serious: Yes (Other)
  Sender: FDA-Public Use
  Company Number: GB-TEVA-624393ISR

PATIENT
  Age: 36 Year
  Sex: Female

DRUGS (8)
  1. SOFOSBUVIR [Interacting]
     Active Substance: SOFOSBUVIR
     Indication: ANTIVIRAL TREATMENT
     Route: 048
     Dates: start: 201408
  2. DACLATASVIR. [Interacting]
     Active Substance: DACLATASVIR
     Indication: ANTIVIRAL TREATMENT
     Route: 048
     Dates: start: 201408
  3. LEVOTHYROXINE. [Concomitant]
     Active Substance: LEVOTHYROXINE
  4. RIGEVIDON [Interacting]
     Active Substance: ETHINYL ESTRADIOL\LEVONORGESTREL
     Indication: POLYCYSTIC OVARIES
     Dosage: LEVONORGESTREL 150 MICROG / ETHINYLESTRADIOL 30 MICROG
     Dates: start: 20140731
  5. RIBAVIRIN. [Suspect]
     Active Substance: RIBAVIRIN
     Indication: ANTIVIRAL TREATMENT
     Dosage: 1200 MILLIGRAM DAILY;
     Route: 048
     Dates: start: 201408
  6. NORETHISTERONE [Interacting]
     Active Substance: NORETHINDRONE
     Indication: POLYCYSTIC OVARIES
     Dosage: 15 MILLIGRAM DAILY; 15 MG DAILY, FOR 3 WEEKS EACH MONTH
     Dates: start: 2010, end: 201405
  7. NORETHISTERONE [Interacting]
     Active Substance: NORETHINDRONE
     Indication: POLYCYSTIC OVARIES
     Dates: start: 201407
  8. MINI-PILL [Interacting]
     Active Substance: NORETHINDRONE
     Indication: POLYCYSTIC OVARIES

REACTIONS (2)
  - Drug-induced liver injury [Not Recovered/Not Resolved]
  - Drug interaction [Unknown]
